FAERS Safety Report 11237282 (Version 1)
Quarter: 2015Q3

REPORT INFORMATION
  Report Type: Spontaneous
  Country: MX (occurrence: MX)
  Receive Date: 20150703
  Receipt Date: 20150703
  Transmission Date: 20151125
  Serious: Yes (Death)
  Sender: FDA-Public Use
  Company Number: MX-ROCHE-1602273

PATIENT
  Age: 73 Year
  Sex: Female
  Weight: 82.5 kg

DRUGS (2)
  1. CAPECITABINE. [Concomitant]
     Active Substance: CAPECITABINE
     Indication: BREAST CANCER METASTATIC
     Dosage: 14 DAYS OF TREATMENT AND 7 DAYS OF REST / 5 CYCLES
     Route: 065
     Dates: start: 20150219, end: 20150513
  2. HERCEPTIN [Suspect]
     Active Substance: TRASTUZUMAB
     Indication: BREAST CANCER METASTATIC
     Dosage: 5 CYCLES ADMINISTERED
     Route: 065
     Dates: start: 20150219, end: 20150513

REACTIONS (1)
  - Death [Fatal]
